FAERS Safety Report 7522174-6 (Version None)
Quarter: 2011Q2

REPORT INFORMATION
  Report Type: 
  Country: None (occurrence: None)
  Receive Date: 20110603
  Receipt Date: 20110329
  Transmission Date: 20111010
  Serious: No
  Sender: FDA-Public Use
  Company Number: US-BAYER-2011-028826

PATIENT
  Age: 55 Year
  Sex: Female
  Weight: 99 kg

DRUGS (1)
  1. ALEVE (CAPLET) [Suspect]
     Indication: BACK PAIN
     Dosage: CONSUMER TOOK 2 OR 3 CAPLETS AS NEEDED. BOTTLE COUNT 24S.
     Dates: start: 20110101

REACTIONS (1)
  - BACK PAIN [None]
